FAERS Safety Report 25238305 (Version 1)
Quarter: 2025Q2

REPORT INFORMATION
  Report Type: Spontaneous
  Country: GB (occurrence: GB)
  Receive Date: 20250425
  Receipt Date: 20250425
  Transmission Date: 20250717
  Serious: Yes (Hospitalization, Other)
  Sender: NOVITIUM PHARMA
  Company Number: GB-NOVITIUMPHARMA-2025GBNVP00940

PATIENT
  Age: 29 Year
  Sex: Male

DRUGS (2)
  1. DEXAMETHASONE [Suspect]
     Active Substance: DEXAMETHASONE
     Indication: Central nervous system lesion
  2. IVERMECTIN [Concomitant]
     Active Substance: IVERMECTIN

REACTIONS (3)
  - Acute respiratory failure [Unknown]
  - Acute respiratory distress syndrome [Unknown]
  - Strongyloidiasis [Unknown]
